FAERS Safety Report 6355680-0 (Version None)
Quarter: 2009Q3

REPORT INFORMATION
  Report Type: 
  Country: None (occurrence: None)
  Receive Date: 20090910
  Receipt Date: 20090826
  Transmission Date: 20100115
  Serious: Yes (Other)
  Sender: FDA-Public Use
  Company Number: 001661

PATIENT
  Age: 62 Year
  Sex: Female

DRUGS (4)
  1. VIMPAT [Suspect]
     Indication: EPILEPSY
     Dosage: ORAL
     Route: 048
     Dates: start: 20090612, end: 20090612
  2. VIMPAT [Suspect]
     Indication: EPILEPSY
     Dosage: ORAL
     Route: 048
     Dates: start: 20090618, end: 20090618
  3. LAMICTAL [Concomitant]
  4. TOPIRAMATE [Concomitant]

REACTIONS (1)
  - GRAND MAL CONVULSION [None]
